FAERS Safety Report 13591744 (Version 2)
Quarter: 2017Q2

REPORT INFORMATION
  Report Type: Spontaneous
  Country: US (occurrence: US)
  Receive Date: 20170530
  Receipt Date: 20170629
  Transmission Date: 20170830
  Serious: Yes (Hospitalization, Other)
  Sender: FDA-Public Use
  Company Number: US-PFIZER INC-2017233320

PATIENT
  Age: 74 Year
  Sex: Female
  Weight: 44 kg

DRUGS (1)
  1. IBRANCE [Suspect]
     Active Substance: PALBOCICLIB
     Dosage: 125 MG, 1X/DAY, FOR 3 WEEKS THEN OFF FOR 1 WEEK
     Dates: end: 20170415

REACTIONS (16)
  - Feeling abnormal [Unknown]
  - Cardiomegaly [Unknown]
  - Platelet count increased [Unknown]
  - Asthma [Unknown]
  - Pulmonary arterial pressure abnormal [Unknown]
  - Pneumothorax [Unknown]
  - Dyspnoea [Unknown]
  - Atrial fibrillation [Unknown]
  - Ventricular enlargement [Unknown]
  - Neoplasm progression [Unknown]
  - Decreased appetite [Unknown]
  - Right atrial enlargement [Unknown]
  - Pulmonary oedema [Unknown]
  - Heart rate decreased [Unknown]
  - Pulmonary embolism [Unknown]
  - Blood pressure decreased [Unknown]
